FAERS Safety Report 13329219 (Version 1)
Quarter: 2017Q1

REPORT INFORMATION
  Report Type: Spontaneous
  Country: NL (occurrence: NL)
  Receive Date: 20170313
  Receipt Date: 20170313
  Transmission Date: 20170428
  Serious: Yes (Death, Other)
  Sender: FDA-Public Use
  Company Number: NL-AMGEN-NLDSP2017036316

PATIENT
  Age: 61 Year
  Sex: Male

DRUGS (4)
  1. PREDNISOLONE TEVA [Concomitant]
     Active Substance: PREDNISOLONE
     Dosage: 5 MG, UNK
  2. XGEVA [Suspect]
     Active Substance: DENOSUMAB
     Indication: PRODUCT USED FOR UNKNOWN INDICATION
     Dosage: 120 MG, Q4WK
     Route: 065
     Dates: start: 20161004, end: 20170223
  3. ZYTIGA [Concomitant]
     Active Substance: ABIRATERONE ACETATE
     Dosage: 250 MG, UNK
  4. FENTANYL TEVA [Concomitant]
     Active Substance: FENTANYL
     Dosage: 100 MUG, UNK

REACTIONS (1)
  - Osteonecrosis [Fatal]

NARRATIVE: CASE EVENT DATE: 2017
